FAERS Safety Report 7359354-9 (Version None)
Quarter: 2011Q1

REPORT INFORMATION
  Report Type: 
  Country: None (occurrence: None)
  Receive Date: 20110317
  Receipt Date: 20091116
  Transmission Date: 20110831
  Serious: No
  Sender: FDA-Public Use
  Company Number: US-PFIZER INC-2009299911

PATIENT
  Age: 60 Year
  Sex: Male

DRUGS (3)
  1. HYDROCHLOROTHIAZIDE [Concomitant]
     Dosage: UNK
  2. NORVASC [Suspect]
     Indication: HYPERTENSION
     Route: 048
  3. LISINOPRIL [Concomitant]
     Dosage: UNK

REACTIONS (1)
  - GINGIVAL HYPERPLASIA [None]
